FAERS Safety Report 5720209-4 (Version None)
Quarter: 2008Q2

REPORT INFORMATION
  Report Type: 
  Country: None (occurrence: None)
  Receive Date: 20080428
  Receipt Date: 20071002
  Transmission Date: 20081010
  Serious: No
  Sender: FDA-Public Use
  Company Number: US-AMGEN-US246077

PATIENT
  Sex: Male
  Weight: 81.5 kg

DRUGS (6)
  1. SENSIPAR [Suspect]
     Indication: HYPERPARATHYROIDISM SECONDARY
     Route: 048
     Dates: start: 20070910, end: 20070928
  2. NORVASC [Concomitant]
     Route: 065
     Dates: start: 20070627
  3. TRAMADOL HCL [Concomitant]
     Route: 065
     Dates: start: 20070528
  4. TPN [Concomitant]
     Route: 065
  5. SIMVASTATIN [Concomitant]
     Route: 065
     Dates: start: 20060419
  6. RENAGEL [Concomitant]
     Route: 065
     Dates: start: 20061020

REACTIONS (3)
  - HYPOAESTHESIA [None]
  - MUSCULAR WEAKNESS [None]
  - PAIN IN EXTREMITY [None]
